FAERS Safety Report 14892131 (Version 1)
Quarter: 2018Q2

REPORT INFORMATION
  Report Type: Spontaneous
  Country: US (occurrence: US)
  Receive Date: 20180514
  Receipt Date: 20180514
  Transmission Date: 20180711
  Serious: Yes (Other)
  Sender: FDA-Public Use
  Company Number: US-PURDUE-USA-2018-0143557

PATIENT
  Age: 77 Year
  Sex: Male

DRUGS (2)
  1. SENOKOT [Suspect]
     Active Substance: SENNOSIDES
     Indication: PRODUCT USED FOR UNKNOWN INDICATION
     Dosage: 1 TABLET, SINGLE
     Route: 048
     Dates: start: 20180509, end: 20180509
  2. SENOKOT [Suspect]
     Active Substance: SENNOSIDES
     Dosage: 1 TABLET, UNK
     Route: 048
     Dates: start: 20180509

REACTIONS (2)
  - Blood glucose increased [Not Recovered/Not Resolved]
  - Sinus headache [Not Recovered/Not Resolved]

NARRATIVE: CASE EVENT DATE: 20180509
